FAERS Safety Report 5057435-6 (Version None)
Quarter: 2006Q3

REPORT INFORMATION
  Report Type: 
  Country: None (occurrence: None)
  Receive Date: 20060721
  Receipt Date: 20050930
  Transmission Date: 20061208
  Serious: No
  Sender: FDA-Public Use
  Company Number: US-GLAXOSMITHKLINE-A0576609A

PATIENT
  Age: 71 Year
  Sex: Male

DRUGS (6)
  1. AVANDIA [Suspect]
     Dosage: 4MG TWICE PER DAY
     Route: 048
  2. LANTUS [Concomitant]
  3. HUMALOG [Concomitant]
  4. VASOTEC [Concomitant]
  5. ZETIA [Concomitant]
  6. ASPIRIN [Concomitant]

REACTIONS (2)
  - MUSCLE TWITCHING [None]
  - WEIGHT INCREASED [None]
